FAERS Safety Report 21059940 (Version 1)
Quarter: 2022Q3

REPORT INFORMATION
  Report Type: Spontaneous
  Country: US (occurrence: US)
  Receive Date: 20220708
  Receipt Date: 20220708
  Transmission Date: 20221027
  Serious: No
  Sender: FDA-Public Use
  Company Number: US-SA-SAC20220701001911

PATIENT
  Age: 53 Year
  Sex: Female

DRUGS (10)
  1. DUPIXENT [Suspect]
     Active Substance: DUPILUMAB
     Indication: Dermatitis atopic
     Dosage: 300 MG, QOW
     Route: 058
  2. ASPIRIN [Concomitant]
     Active Substance: ASPIRIN
  3. BIOTIN [Concomitant]
     Active Substance: BIOTIN
  4. DULOXETINE [Concomitant]
     Active Substance: DULOXETINE
  5. FISH OIL [Concomitant]
     Active Substance: FISH OIL
  6. LUNESTA [Concomitant]
     Active Substance: ESZOPICLONE
  7. OXTELLAR XR [Concomitant]
     Active Substance: OXCARBAZEPINE
  8. POTASSIUM [Concomitant]
     Active Substance: POTASSIUM
  9. VITAMIN D NOS [Concomitant]
     Active Substance: VITAMIN D NOS
  10. STOOL SOFTENER (DOCUSATE) [Concomitant]
     Active Substance: DOCUSATE

REACTIONS (3)
  - Discomfort [Unknown]
  - Depression [Unknown]
  - Rash [Unknown]
